FAERS Safety Report 6615884-6 (Version None)
Quarter: 2010Q1

REPORT INFORMATION
  Report Type: 
  Country: None (occurrence: None)
  Receive Date: 20100305
  Receipt Date: 20100223
  Transmission Date: 20100710
  Serious: Yes (Hospitalization)
  Sender: FDA-Public Use
  Company Number: DE-JNJFOC-20100209521

PATIENT
  Age: 33 Year
  Sex: Female
  Weight: 94 kg

DRUGS (2)
  1. RISPERDAL [Suspect]
     Indication: PSYCHOTIC DISORDER
     Route: 048
  2. RISPERDAL [Suspect]
     Route: 048

REACTIONS (5)
  - AGITATION [None]
  - ANXIETY [None]
  - DEPRESSION [None]
  - NERVOUSNESS [None]
  - RESTLESSNESS [None]
